FAERS Safety Report 5063247-X (Version None)
Quarter: 2006Q3

REPORT INFORMATION
  Report Type: 
  Country: None (occurrence: None)
  Receive Date: 20060703
  Receipt Date: 20060503
  Transmission Date: 20061208
  Serious: No
  Sender: FDA-Public Use
  Company Number: 2006PV013184

PATIENT
  Sex: Female

DRUGS (3)
  1. SYMLIN [Suspect]
     Indication: DRUG USE FOR UNKNOWN INDICATION
     Dosage: SC
     Route: 058
  2. METFORMIN [Concomitant]
  3. NPH INSULIN [Concomitant]

REACTIONS (3)
  - DECREASED APPETITE [None]
  - HEPATIC STEATOSIS [None]
  - PYREXIA [None]
